FAERS Safety Report 9049775 (Version 2)
Quarter: 2014Q1

REPORT INFORMATION
  Report Type: Spontaneous
  Country: US (occurrence: US)
  Receive Date: 20130205
  Receipt Date: 20140124
  Transmission Date: 20141002
  Serious: Yes (Hospitalization, Other)
  Sender: FDA-Public Use
  Company Number: US-BAYER-2013-015016

PATIENT
  Age: 45 Year
  Sex: Female

DRUGS (7)
  1. YAZ [Suspect]
  2. YASMIN [Suspect]
  3. OCELLA [Suspect]
  4. NICODERM [Concomitant]
  5. HYDROCHLOROTHIAZIDE [Concomitant]
  6. LEXAPRO [Concomitant]
  7. ARIXTRA [Concomitant]

REACTIONS (9)
  - Deep vein thrombosis [None]
  - Deep vein thrombosis [None]
  - Pulmonary embolism [None]
  - Injury [None]
  - Pain [None]
  - General physical health deterioration [None]
  - Anxiety [None]
  - Emotional distress [None]
  - Pain [None]
